FAERS Safety Report 9447836 (Version 1)
Quarter: 2013Q3

REPORT INFORMATION
  Report Type: Spontaneous
  Country: IN (occurrence: None)
  Receive Date: 20130805
  Receipt Date: 20130805
  Transmission Date: 20140515
  Serious: Yes (Hospitalization)
  Sender: FDA-Public Use
  Company Number: IN-ALKEM-000110

PATIENT
  Age: 58 Year
  Sex: Male

DRUGS (9)
  1. AMLODIPINE (AMLODIPINE) [Suspect]
     Indication: HYPERTENSION
     Dosage: 1 DAYS
  2. ISOFLURANE (ISOFLURANE) [Concomitant]
  3. THIOPENTONE SODIUM (THIOPENTONE SODIUM) [Concomitant]
  4. GLYCOPYRROLATE (GLYCOPYRROLATE) [Concomitant]
  5. SUCCINYLCHOLINE (SUCCINYLCHOLINE) [Concomitant]
  6. RANITIDINE (RANITIDINE) [Concomitant]
  7. ATRACURIUM (ATRACURIUM) [Concomitant]
  8. ONDANSETRON (ONDANSETRON) [Concomitant]
  9. FENTANYL (FENTANYL) [Concomitant]

REACTIONS (2)
  - Procedural hypotension [None]
  - Metabolic acidosis [None]
